FAERS Safety Report 7037237-1 (Version None)
Quarter: 2010Q4

REPORT INFORMATION
  Report Type: 
  Country: None (occurrence: None)
  Receive Date: 20101011
  Receipt Date: 20100929
  Transmission Date: 20110411
  Serious: Yes (Other)
  Sender: FDA-Public Use
  Company Number: CH-ROCHE-730486

PATIENT
  Age: 49 Year
  Sex: Female

DRUGS (2)
  1. BEVACIZUMAB [Suspect]
     Route: 042
     Dates: start: 20091109, end: 20100308
  2. FLUOROURACIL [Concomitant]
     Dates: start: 20091109, end: 20100308

REACTIONS (8)
  - DIZZINESS [None]
  - HAEMORRHAGE [None]
  - MALIGNANT NEOPLASM PROGRESSION [None]
  - PAIN IN EXTREMITY [None]
  - PERIPHERAL COLDNESS [None]
  - PERSONALITY DISORDER [None]
  - PYREXIA [None]
  - VOMITING [None]
